FAERS Safety Report 12115532 (Version 1)
Quarter: 2016Q1

REPORT INFORMATION
  Report Type: Spontaneous
  Country: US (occurrence: US)
  Receive Date: 20160225
  Receipt Date: 20160225
  Transmission Date: 20160526
  Serious: No
  Sender: FDA-Public Use
  Company Number: US-MYLANLABS-2015M1023532

PATIENT
  Age: 65 Year
  Sex: Female

DRUGS (3)
  1. ALPRAZOLAM TABLETS, USP [Suspect]
     Active Substance: ALPRAZOLAM
     Indication: PANIC ATTACK
     Dosage: 1 MG, 6XD
     Route: 048
  2. ALPRAZOLAM TABLETS, USP [Suspect]
     Active Substance: ALPRAZOLAM
     Indication: PANIC ATTACK
     Dosage: 1 MG
     Route: 048
     Dates: start: 20150706, end: 20150708
  3. ALPRAZOLAM. [Suspect]
     Active Substance: ALPRAZOLAM
     Indication: PANIC ATTACK
     Dosage: 1 MG, SEVERAL TABLETS
     Route: 048
     Dates: start: 20150701, end: 20150701

REACTIONS (3)
  - Urticaria [Recovered/Resolved]
  - Pruritus [Recovered/Resolved]
  - Papule [Recovered/Resolved]

NARRATIVE: CASE EVENT DATE: 201507
